FAERS Safety Report 7077739-5 (Version None)
Quarter: 2010Q4

REPORT INFORMATION
  Report Type: 
  Country: None (occurrence: None)
  Receive Date: 20101101
  Receipt Date: 20101019
  Transmission Date: 20110411
  Serious: Yes (Hospitalization)
  Sender: FDA-Public Use
  Company Number: US-CELGENEUS-163-50794-10102955

PATIENT
  Sex: Female

DRUGS (17)
  1. VIDAZA [Suspect]
     Indication: MYELODYSPLASTIC SYNDROME
     Route: 065
  2. PROCRIT [Concomitant]
     Indication: BLOOD ERYTHROPOIETIN DECREASED
     Route: 065
  3. ALLOPURINOL [Concomitant]
     Route: 065
  4. ARANESP [Concomitant]
     Route: 065
  5. ESOMEPRAZOLE MAGNESIUM [Concomitant]
     Route: 065
  6. FOLIC ACID [Concomitant]
     Route: 065
  7. LASIX [Concomitant]
     Route: 065
  8. NEURONTIN [Concomitant]
     Route: 065
  9. NOVOLOG [Concomitant]
     Route: 065
  10. HUMULIN 70/30 [Concomitant]
     Route: 065
  11. NITROGLYCERIN [Concomitant]
     Route: 065
  12. LOVAZA [Concomitant]
     Route: 065
  13. PREDNISONE [Concomitant]
     Route: 065
  14. ZOCOR [Concomitant]
     Route: 065
  15. WARFARIN [Concomitant]
     Route: 065
  16. ACETAMINOPHEN [Concomitant]
     Route: 065
  17. AMBIEN [Concomitant]
     Route: 065

REACTIONS (5)
  - CELLULITIS [None]
  - CONVULSION [None]
  - GOUTY ARTHRITIS [None]
  - PANCYTOPENIA [None]
  - SEPSIS [None]
